FAERS Safety Report 22191086 (Version 1)
Quarter: 2023Q2

REPORT INFORMATION
  Report Type: Spontaneous
  Country: US (occurrence: US)
  Receive Date: 20230410
  Receipt Date: 20230410
  Transmission Date: 20230722
  Serious: Yes (Hospitalization)
  Sender: FDA-Public Use
  Company Number: US-BRISTOL-MYERS SQUIBB COMPANY-2023-028853

PATIENT
  Age: 72 Year
  Sex: Female

DRUGS (1)
  1. LENALIDOMIDE [Suspect]
     Active Substance: LENALIDOMIDE
     Indication: Plasma cell myeloma
     Dosage: FREQUENCY CYCLE: 21DAYS ON 7 DAYS OFF??TAKE 1 CAPSULE BY MOUTH EVERY DAY
     Route: 048
     Dates: end: 20230329

REACTIONS (1)
  - Infection [Recovered/Resolved]
